FAERS Safety Report 5022336-6 (Version None)
Quarter: 2006Q2

REPORT INFORMATION
  Report Type: 
  Country: None (occurrence: None)
  Receive Date: 20060501
  Receipt Date: 20060206
  Transmission Date: 20061013
  Serious: Yes (Other)
  Sender: FDA-Public Use
  Company Number: 144521USA

PATIENT
  Age: 48 Year
  Sex: Female
  Weight: 104.3273 kg

DRUGS (4)
  1. OXYCODONE HCL [Suspect]
     Dosage: 80 MILLIGRAM Q6HR ORAL
     Route: 048
     Dates: start: 20050501, end: 20060101
  2. ARTANE [Concomitant]
  3. PERCOCET [Concomitant]
  4. ZANAFLEX [Concomitant]

REACTIONS (3)
  - DRUG HYPERSENSITIVITY [None]
  - DRUG INEFFECTIVE [None]
  - LOSS OF CONSCIOUSNESS [None]
